FAERS Safety Report 8240091-3 (Version None)
Quarter: 2012Q1

REPORT INFORMATION
  Report Type: 
  Country: None (occurrence: None)
  Receive Date: 20120328
  Receipt Date: 20120323
  Transmission Date: 20120608
  Serious: No
  Sender: FDA-Public Use
  Company Number: US-BAYER-2012-029560

PATIENT
  Age: 45 Year
  Sex: Female
  Weight: 93 kg

DRUGS (1)
  1. ALEVE (CAPLET) [Suspect]
     Indication: DYSMENORRHOEA
     Dosage: 2 DF, TID
     Route: 048
     Dates: start: 20120321, end: 20120322

REACTIONS (1)
  - DYSMENORRHOEA [None]
